FAERS Safety Report 5141005-5 (Version None)
Quarter: 2006Q4

REPORT INFORMATION
  Report Type: 
  Country: None (occurrence: None)
  Receive Date: 20061026
  Receipt Date: 20061013
  Transmission Date: 20070319
  Serious: Yes (Hospitalization)
  Sender: FDA-Public Use
  Company Number: 2006126103

PATIENT
  Age: 68 Year
  Sex: Male
  Weight: 71 kg

DRUGS (11)
  1. SU-011,248 (SUNITINIB MALATE) [Suspect]
     Indication: METASTATIC RENAL CELL CARCINOMA
     Dosage: 50 MG (50  MG, 1 IN 1 D), ORAL
     Route: 048
     Dates: start: 20060815
  2. CLODRONATE SODIUM (CLODRONATE DISODIUM) [Concomitant]
  3. TENOX (TEMAZEPAM) [Concomitant]
  4. OXYCODONE HCL [Concomitant]
  5. LYRICA [Concomitant]
  6. NAPROMETIN (NAPROXEN) [Concomitant]
  7. PANTOPRAZOLE SODIUM [Concomitant]
  8. LAXOBERON (SODIUM PICOSULFATE) [Concomitant]
  9. MOVICOL (MACROGOL, POTASSIUM CHLORIDE, SODIUM BICARBONATE, SODIUM CHLO [Concomitant]
  10. KALCIPOS-D (CALCIUM CARBONATE, COLECALCIFEROL) [Concomitant]
  11. METOCLOPRAMIDE (METOCLORAMIDE) [Concomitant]

REACTIONS (5)
  - BONE PAIN [None]
  - CONSTIPATION [None]
  - FATIGUE [None]
  - NAUSEA [None]
  - RENAL FAILURE [None]
